FAERS Safety Report 12067801 (Version 1)
Quarter: 2016Q1

REPORT INFORMATION
  Report Type: Spontaneous
  Country: US (occurrence: US)
  Receive Date: 20160211
  Receipt Date: 20160211
  Transmission Date: 20160526
  Serious: No
  Sender: FDA-Public Use
  Company Number: US-SMITH AND NEPHEW, INC-2015SMT00070

PATIENT
  Age: 75 Year
  Sex: Male
  Weight: 88.44 kg

DRUGS (5)
  1. REGRANEX [Suspect]
     Active Substance: BECAPLERMIN
     Indication: CALCINOSIS
  2. HYDROCODONE [Concomitant]
     Active Substance: HYDROCODONE
     Dosage: UNK, 4X/DAY
  3. 13 UNSPECIFIED CONCOMITANT MEDICATIONS [Concomitant]
  4. REGRANEX [Suspect]
     Active Substance: BECAPLERMIN
     Indication: THERMAL BURN
     Dosage: 1 DOSAGE UNITS, 1X/DAY
     Route: 061
     Dates: start: 201504, end: 20150422
  5. REGRANEX [Suspect]
     Active Substance: BECAPLERMIN
     Indication: SKIN ULCER

REACTIONS (3)
  - Drug ineffective for unapproved indication [Unknown]
  - Application site haemorrhage [Recovered/Resolved]
  - Application site pain [Recovered/Resolved]

NARRATIVE: CASE EVENT DATE: 201504
